FAERS Safety Report 7364385-9 (Version None)
Quarter: 2011Q1

REPORT INFORMATION
  Report Type: 
  Country: None (occurrence: None)
  Receive Date: 20110321
  Receipt Date: 20110310
  Transmission Date: 20110831
  Serious: Yes (Other)
  Sender: FDA-Public Use
  Company Number: KZ-JNJFOC-20100908285

PATIENT
  Sex: Female
  Weight: 92 kg

DRUGS (8)
  1. CORTICOSTEROIDS [Suspect]
     Indication: PREMEDICATION
     Route: 065
  2. YONDELIS [Suspect]
     Dosage: CYCLE 3, TOTAL DOSE 10MG
     Route: 042
  3. YONDELIS [Suspect]
     Dosage: CYCLE 2, TOTAL DOSE 10 MG
     Route: 042
  4. ANTI HYPERTENSIVES [Concomitant]
     Indication: HYPERTENSION
     Route: 048
  5. YONDELIS [Suspect]
     Indication: OVARIAN CANCER
     Dosage: CYCLE 1, TOTAL DOSE 10MG
     Route: 042
  6. YONDELIS [Suspect]
     Dosage: CYCLE 4, TOTAL DOSE 10MG
     Route: 042
  7. CAELYX [Suspect]
     Indication: OVARIAN CANCER
     Route: 042
  8. YONDELIS [Suspect]
     Dosage: CYCLE 5, TOTAL DOSE 10MG
     Route: 042

REACTIONS (2)
  - URINARY RETENTION [None]
  - PHLEBITIS [None]
